FAERS Safety Report 7366260-2 (Version None)
Quarter: 2011Q1

REPORT INFORMATION
  Report Type: 
  Country: None (occurrence: None)
  Receive Date: 20110309
  Receipt Date: 20110113
  Transmission Date: 20110831
  Serious: Yes (Other)
  Sender: FDA-Public Use
  Company Number: PI-05312

PATIENT
  Sex: Female

DRUGS (2)
  1. CHLORAPREP WITH TINT [Suspect]
     Indication: INFECTION PROPHYLAXIS
     Dosage: 26ML, TWICE, TOPICAL
     Route: 061
     Dates: start: 20101119
  2. CHLORAPREP WITH TINT [Suspect]
     Indication: PREOPERATIVE CARE
     Dosage: 26ML, TWICE, TOPICAL
     Route: 061
     Dates: start: 20101119

REACTIONS (1)
  - BURNS SECOND DEGREE [None]
